FAERS Safety Report 7477176-5 (Version None)
Quarter: 2011Q2

REPORT INFORMATION
  Report Type: 
  Country: None (occurrence: None)
  Receive Date: 20110512
  Receipt Date: 20110219
  Transmission Date: 20111010
  Serious: No
  Sender: FDA-Public Use
  Company Number: US-NOVEN-11US001832

PATIENT
  Sex: Male
  Weight: 36.281 kg

DRUGS (3)
  1. DAYTRANA [Suspect]
     Indication: ATTENTION DEFICIT/HYPERACTIVITY DISORDER
     Dosage: 10 MG, QD
     Route: 062
     Dates: start: 20110201
  2. DAYTRANA [Suspect]
     Dosage: 2 PATCHES, UNK MG, DAY OR TWO
     Dates: start: 20110201
  3. RISPERDAL [Concomitant]
     Indication: AUTISM
     Dosage: 5 MG, QD
     Route: 048
     Dates: start: 20100101

REACTIONS (4)
  - NASOPHARYNGITIS [None]
  - DRUG ADMINISTRATION ERROR [None]
  - DRUG PRESCRIBING ERROR [None]
  - DRUG ADMINISTERED AT INAPPROPRIATE SITE [None]
